FAERS Safety Report 7692066-0 (Version None)
Quarter: 2011Q3

REPORT INFORMATION
  Report Type: 
  Country: None (occurrence: None)
  Receive Date: 20110818
  Receipt Date: 20110809
  Transmission Date: 20111222
  Serious: Yes (Death)
  Sender: FDA-Public Use
  Company Number: SG-GENZYME-POMP-1001706

PATIENT
  Sex: Female
  Weight: 9.3 kg

DRUGS (3)
  1. FLECAINIDE ACETATE [Concomitant]
     Indication: CARDIOMYOPATHY
     Dosage: 10 MG, BID
     Dates: start: 20100101
  2. CAPTOPRIL [Concomitant]
     Indication: CARDIOMYOPATHY
     Dosage: 0.8 MG, TID
     Dates: start: 20100101
  3. MYOZYME [Suspect]
     Indication: GLYCOGEN STORAGE DISEASE TYPE II
     Dosage: 15 MG/KG, Q2W
     Route: 042

REACTIONS (1)
  - DEATH [None]
